FAERS Safety Report 13908452 (Version 1)
Quarter: 2017Q3

REPORT INFORMATION
  Report Type: Spontaneous
  Country: GB (occurrence: GB)
  Receive Date: 20170826
  Receipt Date: 20170826
  Transmission Date: 20171127
  Serious: Yes (Other)
  Sender: FDA-Public Use
  Company Number: GB-EMD SERONO-8102045

PATIENT
  Age: 31 Year
  Sex: Female

DRUGS (2)
  1. NORETHISTERONE [Concomitant]
     Active Substance: NORETHINDRONE
     Indication: PRODUCT USED FOR UNKNOWN INDICATION
  2. REBIF [Suspect]
     Active Substance: INTERFERON BETA-1A
     Indication: MULTIPLE SCLEROSIS
     Dates: start: 20081208, end: 201608

REACTIONS (3)
  - Complication of pregnancy [Recovered/Resolved]
  - Normal newborn [Recovered/Resolved]
  - Maternal exposure during pregnancy [Recovered/Resolved]

NARRATIVE: CASE EVENT DATE: 201607
